FAERS Safety Report 4960447-1 (Version None)
Quarter: 2006Q2

REPORT INFORMATION
  Report Type: 
  Country: None (occurrence: None)
  Receive Date: 20060403
  Receipt Date: 20060329
  Transmission Date: 20061013
  Serious: Yes (Other)
  Sender: FDA-Public Use
  Company Number: US-GLAXOSMITHKLINE-A0599549A

PATIENT
  Sex: Female

DRUGS (2)
  1. VALTREX [Suspect]
     Route: 048
     Dates: start: 20060301, end: 20060301
  2. WEIGHT LOSS SUPPLEMENT [Suspect]

REACTIONS (2)
  - DRUG INTERACTION [None]
  - URTICARIA [None]
